FAERS Safety Report 20875200 (Version 4)
Quarter: 2023Q1

REPORT INFORMATION
  Report Type: Spontaneous
  Country: CA (occurrence: CA)
  Receive Date: 20220526
  Receipt Date: 20230104
  Transmission Date: 20230418
  Serious: No
  Sender: FDA-Public Use
  Company Number: CA-CELLTRION INC.-2021CA018366

PATIENT

DRUGS (8)
  1. INFLECTRA [Suspect]
     Active Substance: INFLIXIMAB-DYYB
     Indication: Crohn^s disease
     Dosage: 400 MG, WEEK 0,2,6 WEEKS, THEN EVERY 8 WEEKS
     Route: 042
     Dates: start: 20211209
  2. INFLECTRA [Suspect]
     Active Substance: INFLIXIMAB-DYYB
     Dosage: 400 MG, WEEK 0,2,6 WEEKS, THEN EVERY 8 WEEKS
     Route: 042
     Dates: start: 20211223
  3. INFLECTRA [Suspect]
     Active Substance: INFLIXIMAB-DYYB
     Dosage: 400 MG,WEEK 0,2,6 WEEKS, THEN EVERY 8 WEEKS.
     Route: 042
     Dates: start: 20220317
  4. INFLECTRA [Suspect]
     Active Substance: INFLIXIMAB-DYYB
     Dosage: 400 MG, WEEK 0,2,6 WEEKS, THEN EVERY 8 WEEKS.
     Route: 042
     Dates: start: 20220516
  5. INFLECTRA [Suspect]
     Active Substance: INFLIXIMAB-DYYB
     Dosage: 400 MG, WEEK 0,2,6 WEEKS, THEN EVERY 8 WEEKS.
     Route: 042
     Dates: start: 20220707
  6. INFLECTRA [Suspect]
     Active Substance: INFLIXIMAB-DYYB
     Dosage: 400 MG, WEEK 0,2,6 WEEKS, THEN EVERY 8 WEEKS.
     Route: 042
     Dates: start: 20221028
  7. INFLECTRA [Suspect]
     Active Substance: INFLIXIMAB-DYYB
     Dosage: 400 MG, WEEK 0,2,6 WEEKS, THEN EVERY 8 WEEKS.
     Route: 042
     Dates: start: 20221223
  8. MESALAMINE [Concomitant]
     Active Substance: MESALAMINE
     Dosage: 2.4 G, (1DF), 1X/DAY
     Route: 065

REACTIONS (7)
  - Off label use [Unknown]
  - Inappropriate schedule of product administration [Unknown]
  - Hypertension [Not Recovered/Not Resolved]
  - Anxiety [Not Recovered/Not Resolved]
  - Hypotension [Unknown]
  - Condition aggravated [Not Recovered/Not Resolved]
  - Arthralgia [Unknown]

NARRATIVE: CASE EVENT DATE: 20211201
